FAERS Safety Report 14184497 (Version 2)
Quarter: 2017Q4

REPORT INFORMATION
  Report Type: Spontaneous
  Country: BR (occurrence: BR)
  Receive Date: 20171113
  Receipt Date: 20171215
  Transmission Date: 20180321
  Serious: Yes (Hospitalization)
  Sender: FDA-Public Use
  Company Number: BR-BIOMARINAP-BR-2017-116059

PATIENT
  Age: 18 Year
  Sex: Female
  Weight: 26 kg

DRUGS (1)
  1. NAGLAZYME [Suspect]
     Active Substance: GALSULFASE
     Indication: MUCOPOLYSACCHARIDOSIS VI
     Dosage: UNK UNK, QW
     Route: 042
     Dates: start: 20171108

REACTIONS (3)
  - Pneumonia [Not Recovered/Not Resolved]
  - Sepsis [Unknown]
  - Anuria [Unknown]

NARRATIVE: CASE EVENT DATE: 20171108
